FAERS Safety Report 13870591 (Version 1)
Quarter: 2017Q3

REPORT INFORMATION
  Report Type: Spontaneous
  Country: GB (occurrence: GB)
  Receive Date: 20170816
  Receipt Date: 20170816
  Transmission Date: 20171127
  Serious: Yes (Disabling, Other)
  Sender: FDA-Public Use
  Company Number: PHFR2017GB006496

PATIENT
  Sex: Female

DRUGS (1)
  1. TOPIRAMATE. [Suspect]
     Active Substance: TOPIRAMATE
     Indication: INTRACRANIAL PRESSURE INCREASED
     Dosage: 50 MG, UNK
     Route: 048
     Dates: start: 201607, end: 201706

REACTIONS (1)
  - Oral disorder [Unknown]
